FAERS Safety Report 17330158 (Version 1)
Quarter: 2020Q1

REPORT INFORMATION
  Report Type: Spontaneous
  Country: US (occurrence: US)
  Receive Date: 20200127
  Receipt Date: 20200127
  Transmission Date: 20200409
  Serious: Yes (Other)
  Sender: FDA-Public Use
  Company Number: US-REGENERON PHARMACEUTICALS, INC.-2019-62284

PATIENT

DRUGS (3)
  1. EYLEA [Suspect]
     Active Substance: AFLIBERCEPT
     Dosage: 4-5 WEEKS, RIGHT EYE
     Route: 031
     Dates: start: 2014
  2. EYLEA [Suspect]
     Active Substance: AFLIBERCEPT
     Indication: NEOVASCULAR AGE-RELATED MACULAR DEGENERATION
     Dosage: 4-5 WEEKS, RIGHT EYE
     Route: 031
     Dates: start: 20120608
  3. EYLEA [Suspect]
     Active Substance: AFLIBERCEPT
     Dosage: 4-5 WEEKS, RIGHT EYE, LAST DOSE PRIOR TO EVENT
     Route: 031
     Dates: start: 20191009, end: 20191009

REACTIONS (2)
  - Iritis [Recovering/Resolving]
  - Non-infectious endophthalmitis [Recovering/Resolving]

NARRATIVE: CASE EVENT DATE: 20191018
